FAERS Safety Report 23820101 (Version 1)
Quarter: 2024Q2

REPORT INFORMATION
  Report Type: Spontaneous
  Country: US (occurrence: None)
  Receive Date: 20240503
  Receipt Date: 20240503
  Transmission Date: 20240716
  Serious: Yes (Hospitalization)
  Sender: FDA-Public Use
  Company Number: None

PATIENT
  Age: 67 Year
  Sex: Female
  Weight: 62 kg

DRUGS (1)
  1. ERDAFITINIB [Suspect]
     Active Substance: ERDAFITINIB
     Indication: Glioblastoma
     Dosage: FREQUENCY : DAILY;?
     Route: 048
     Dates: start: 20231228, end: 20240413

REACTIONS (7)
  - Rash [None]
  - Diarrhoea [None]
  - Constipation [None]
  - Nausea [None]
  - Ileus [None]
  - Rash pruritic [None]
  - Hyperphosphataemia [None]

NARRATIVE: CASE EVENT DATE: 20240415
